FAERS Safety Report 6916597-3 (Version None)
Quarter: 2010Q3

REPORT INFORMATION
  Report Type: 
  Country: None (occurrence: None)
  Receive Date: 20100810
  Receipt Date: 20100802
  Transmission Date: 20110219
  Serious: Yes (Disabling)
  Sender: FDA-Public Use
  Company Number: FR-BAXTER-2010BH012942

PATIENT
  Age: 15 Year
  Sex: Male

DRUGS (20)
  1. CYCLOPHOSPHAMIDE [Suspect]
     Indication: HODGKIN'S DISEASE
     Route: 042
     Dates: start: 20091223, end: 20091223
  2. MABTHERA [Suspect]
     Indication: HODGKIN'S DISEASE
     Route: 042
     Dates: start: 20091223, end: 20091223
  3. VINCRISTINE SULFATE [Suspect]
     Indication: HODGKIN'S DISEASE
     Route: 042
     Dates: start: 20100120, end: 20100128
  4. VINCRISTINE SULFATE [Suspect]
     Route: 042
     Dates: start: 20100222, end: 20100222
  5. VINCRISTINE SULFATE [Suspect]
     Route: 042
     Dates: start: 20091223, end: 20091223
  6. VINCRISTINE SULFATE [Suspect]
     Route: 042
     Dates: start: 20100215, end: 20100215
  7. VINCRISTINE SULFATE [Suspect]
     Route: 042
     Dates: start: 20100301, end: 20100301
  8. PREDNISOLONE [Suspect]
     Indication: HODGKIN'S DISEASE
     Route: 042
     Dates: start: 20091223, end: 20091223
  9. ETOPOSIDE [Suspect]
     Indication: HODGKIN'S DISEASE
     Route: 042
     Dates: start: 20100215, end: 20100215
  10. ETOPOSIDE [Suspect]
     Route: 042
     Dates: start: 20100217, end: 20100219
  11. ETOPOSIDE [Suspect]
     Route: 042
     Dates: start: 20100114, end: 20100117
  12. DOXORUBICIN HCL [Suspect]
     Indication: HODGKIN'S DISEASE
     Route: 042
     Dates: start: 20100301, end: 20100301
  13. DOXORUBICIN HCL [Suspect]
     Route: 042
     Dates: start: 20100215, end: 20100215
  14. FASTURTEC [Concomitant]
     Indication: PRODUCT USED FOR UNKNOWN INDICATION
     Route: 065
  15. LASIX [Concomitant]
     Indication: PRODUCT USED FOR UNKNOWN INDICATION
     Route: 065
  16. LOVENOX [Concomitant]
     Indication: PRODUCT USED FOR UNKNOWN INDICATION
     Route: 065
  17. HYDROXYZINE [Concomitant]
     Indication: PRODUCT USED FOR UNKNOWN INDICATION
     Route: 065
  18. PERFALGAN [Concomitant]
     Indication: PRODUCT USED FOR UNKNOWN INDICATION
     Route: 065
  19. BACTRIM [Concomitant]
     Indication: PRODUCT USED FOR UNKNOWN INDICATION
     Route: 065
  20. LEXOMIL [Concomitant]
     Indication: PRODUCT USED FOR UNKNOWN INDICATION
     Route: 065

REACTIONS (5)
  - DISORIENTATION [None]
  - DYSARTHRIA [None]
  - MEMORY IMPAIRMENT [None]
  - NERVOUS SYSTEM DISORDER [None]
  - TREMOR [None]
